FAERS Safety Report 16679000 (Version 2)
Quarter: 2019Q4

REPORT INFORMATION
  Report Type: Spontaneous
  Country: US (occurrence: US)
  Receive Date: 20190807
  Receipt Date: 20191107
  Transmission Date: 20200122
  Serious: No
  Sender: FDA-Public Use
  Company Number: US-SA-2019SA209764

PATIENT
  Age: 70 Year
  Sex: Female

DRUGS (1)
  1. CLEXANE [Suspect]
     Active Substance: ENOXAPARIN SODIUM
     Indication: CEREBROVASCULAR ACCIDENT
     Dosage: 60 MG, QD
     Route: 065

REACTIONS (2)
  - Injection site pain [Unknown]
  - Incorrect route of product administration [Unknown]
